FAERS Safety Report 9675815 (Version 2)
Quarter: 2013Q4

REPORT INFORMATION
  Report Type: Spontaneous
  Country: US (occurrence: US)
  Receive Date: 20131107
  Receipt Date: 20131125
  Transmission Date: 20140711
  Serious: Yes (Hospitalization)
  Sender: FDA-Public Use
  Company Number: US-MYLANLABS-2013S1024415

PATIENT
  Age: 14 Year
  Sex: Female

DRUGS (5)
  1. BUPROPION [Suspect]
     Indication: OVERDOSE
     Dosage: 9G
     Route: 048
  2. LIPID EMULSION [Suspect]
     Indication: TOXICITY TO VARIOUS AGENTS
     Dosage: TWO 100ML BOLUSES; THEN RECEIVED INFUSION OF 0.25 ML/KG/MIN
     Route: 065
  3. LIPID EMULSION [Suspect]
     Indication: TOXICITY TO VARIOUS AGENTS
     Dosage: 0.25 ML/KG/MIN
     Route: 050
  4. HYDROXYZINE [Concomitant]
     Route: 048
  5. CITALOPRAM [Concomitant]
     Route: 048

REACTIONS (10)
  - Convulsion [Recovering/Resolving]
  - Electrocardiogram QT prolonged [Recovering/Resolving]
  - Metabolic acidosis [Unknown]
  - Electrocardiogram QRS complex prolonged [Recovering/Resolving]
  - Hypotension [Recovering/Resolving]
  - Nodal arrhythmia [Recovering/Resolving]
  - Overdose [Recovering/Resolving]
  - Hyperlipidaemia [Recovering/Resolving]
  - Hypertriglyceridaemia [Recovering/Resolving]
  - Pancreatitis [Recovered/Resolved]
